FAERS Safety Report 7637012-0 (Version None)
Quarter: 2011Q3

REPORT INFORMATION
  Report Type: 
  Country: None (occurrence: None)
  Receive Date: 20110726
  Receipt Date: 20110719
  Transmission Date: 20111222
  Serious: Yes (Other)
  Sender: FDA-Public Use
  Company Number: TW-PFIZER INC-2011163814

PATIENT
  Age: 44 Year
  Sex: Female

DRUGS (9)
  1. SEROQUEL [Suspect]
     Indication: PSYCHOTIC DISORDER
     Dosage: 200 MG, 1X/DAY AT BEDTIME
     Dates: start: 20080603
  2. NORVASC [Concomitant]
     Indication: HYPERTENSION
     Dosage: 5 MG, 1X/DAY
  3. TENORMIN [Concomitant]
     Indication: HYPERTENSION
     Dosage: 1 TABLET ONCE DAILY
  4. DEPAKENE [Suspect]
     Indication: PSYCHOTIC DISORDER
     Dosage: 500 MG, 1X/DAY AT BEDTIME
     Dates: start: 20080620
  5. GEODON [Suspect]
     Dosage: 60 MG, 2X/DAY
     Dates: start: 20100204
  6. SEROQUEL [Suspect]
     Dosage: 400 MG, 1X/DAY AT BEDTIME
     Dates: start: 20080606
  7. SEROQUEL [Suspect]
     Dosage: 600 MG, 1X/DAY AT BEDTIME
     Dates: start: 20080620, end: 20100204
  8. DEPAKENE [Suspect]
     Dosage: 500 MG, EVERY 12 HOURS
     Dates: start: 20080729
  9. DEPAKENE [Suspect]
     Dosage: 1000 MG, 1X/DAY
     Dates: start: 20090901, end: 20100204

REACTIONS (3)
  - WEIGHT DECREASED [None]
  - ELECTROCARDIOGRAM QT PROLONGED [None]
  - METABOLIC SYNDROME [None]
